FAERS Safety Report 10606616 (Version 1)
Quarter: 2014Q4

REPORT INFORMATION
  Report Type: Spontaneous
  Country: US (occurrence: None)
  Receive Date: 20141124
  Receipt Date: 20141124
  Transmission Date: 20150529
  Serious: Yes (Other)
  Sender: FDA-Public Use
  Company Number: None

PATIENT
  Age: 79 Year
  Sex: Male
  Weight: 81.65 kg

DRUGS (2)
  1. LEVOFLOXACIN. [Suspect]
     Active Substance: LEVOFLOXACIN
     Indication: VIRAL INFECTION
     Route: 048
     Dates: start: 20140814, end: 20140901
  2. LEVOFLOXACIN. [Suspect]
     Active Substance: LEVOFLOXACIN
     Route: 048
     Dates: start: 20140814, end: 20140901

REACTIONS (5)
  - Musculoskeletal pain [None]
  - Pain in extremity [None]
  - Joint swelling [None]
  - Arthralgia [None]
  - Dysstasia [None]

NARRATIVE: CASE EVENT DATE: 20140814
